FAERS Safety Report 10301937 (Version 3)
Quarter: 2014Q4

REPORT INFORMATION
  Report Type: Spontaneous
  Country: CA (occurrence: None)
  Receive Date: 20140709
  Receipt Date: 20141112
  Transmission Date: 20150528
  Serious: Yes (Hospitalization, Other)
  Sender: FDA-Public Use
  Company Number: VAL_03201_2014

PATIENT

DRUGS (3)
  1. DIGOXIN (DIGOXIN) [Suspect]
     Active Substance: DIGOXIN
     Indication: PRODUCT USED FOR UNKNOWN INDICATION
     Dosage: DF TRANSPLACENTAL ?
     Route: 064
  2. METOPROLOL (METOPROLOL - METOPROLOL TARTRATE) [Suspect]
     Active Substance: METOPROLOL
     Indication: PRODUCT USED FOR UNKNOWN INDICATION
     Dosage: DF TRANSPLACENTAL?
     Route: 064
  3. ENOXAPARIN (ENOXAPARIN) [Suspect]
     Active Substance: ENOXAPARIN
     Indication: PRODUCT USED FOR UNKNOWN INDICATION
     Dosage: DF TRANSPLACENTAL ?
     Route: 064

REACTIONS (3)
  - Caesarean section [None]
  - Foetal heart rate abnormal [None]
  - Maternal drugs affecting foetus [None]
